FAERS Safety Report 21576742 (Version 1)
Quarter: 2022Q4

REPORT INFORMATION
  Report Type: Spontaneous
  Country: US (occurrence: US)
  Receive Date: 20221110
  Receipt Date: 20221110
  Transmission Date: 20230113
  Serious: Yes (Other)
  Sender: FDA-Public Use
  Company Number: US-SA-SAC20221109001345

PATIENT
  Sex: Male

DRUGS (1)
  1. DUPIXENT [Suspect]
     Active Substance: DUPILUMAB
     Indication: Dermatitis atopic
     Dosage: 3600 MG, QOW
     Route: 058
     Dates: start: 20220520, end: 20221104

REACTIONS (2)
  - Lung neoplasm malignant [Unknown]
  - Product use issue [Unknown]
